FAERS Safety Report 22267391 (Version 2)
Quarter: 2023Q2

REPORT INFORMATION
  Report Type: Spontaneous
  Country: US (occurrence: US)
  Receive Date: 20230428
  Receipt Date: 20230508
  Transmission Date: 20230722
  Serious: Yes (Other)
  Sender: FDA-Public Use
  Company Number: US-AMGEN-USASP2023069640

PATIENT
  Age: 10 Year
  Sex: Female

DRUGS (1)
  1. INFLIXIMAB [Suspect]
     Active Substance: INFLIXIMAB
     Indication: Crohn^s disease
     Route: 065

REACTIONS (6)
  - Combined immunodeficiency [Unknown]
  - Osteomyelitis [Unknown]
  - Mycobacterium avium complex infection [Recovered/Resolved]
  - Mycobacterium abscessus infection [Unknown]
  - Arthritis [Unknown]
  - Therapy partial responder [Unknown]
